FAERS Safety Report 4821062-3 (Version None)
Quarter: 2005Q4

REPORT INFORMATION
  Report Type: 
  Country: None (occurrence: None)
  Receive Date: 20051104
  Receipt Date: 20051026
  Transmission Date: 20060501
  Serious: Yes (Hospitalization)
  Sender: FDA-Public Use
  Company Number: US-MERCK-0510USA09462

PATIENT
  Age: 44 Year
  Sex: Male
  Weight: 116 kg

DRUGS (2)
  1. VIOXX [Suspect]
     Indication: ARTHRALGIA
     Route: 048
     Dates: start: 20010529, end: 20020910
  2. VIOXX [Suspect]
     Indication: HEADACHE
     Route: 048
     Dates: start: 20010529, end: 20020910

REACTIONS (8)
  - ANXIETY [None]
  - DYSPNOEA [None]
  - HEADACHE [None]
  - HEMIPARESIS [None]
  - HYPERTENSION [None]
  - PAIN IN EXTREMITY [None]
  - RETINAL TEAR [None]
  - SUBARACHNOID HAEMORRHAGE [None]
